FAERS Safety Report 14646532 (Version 8)
Quarter: 2021Q4

REPORT INFORMATION
  Report Type: Other
  Country: US (occurrence: US)
  Receive Date: 20180316
  Receipt Date: 20211022
  Transmission Date: 20220303
  Serious: Yes (Death, Hospitalization)
  Sender: FDA-Public Use
  Company Number: US-ROCHE-2085068

PATIENT
  Age: 75 Year
  Sex: Female
  Weight: 70.37 kg

DRUGS (5)
  1. ALECENSA [Suspect]
     Active Substance: ALECTINIB HYDROCHLORIDE
     Indication: Lung neoplasm malignant
     Dosage: 4 CAPSULES TWICE DAILY
     Route: 048
     Dates: start: 20171016
  2. ALECENSA [Suspect]
     Active Substance: ALECTINIB HYDROCHLORIDE
     Indication: Malignant lymphoid neoplasm
  3. ALECENSA [Suspect]
     Active Substance: ALECTINIB HYDROCHLORIDE
     Indication: Metastases to central nervous system
  4. ALECENSA [Suspect]
     Active Substance: ALECTINIB HYDROCHLORIDE
     Indication: Metastases to lymph nodes
  5. CALCIUM [Concomitant]
     Active Substance: CALCIUM
     Route: 048
     Dates: start: 20171019

REACTIONS (4)
  - Influenza [Recovering/Resolving]
  - Pneumonia [Unknown]
  - Hypoacusis [Unknown]
  - Disorientation [Unknown]

NARRATIVE: CASE EVENT DATE: 20180225
